FAERS Safety Report 4300563-0 (Version None)
Quarter: 2004Q1

REPORT INFORMATION
  Report Type: 
  Country: None (occurrence: None)
  Receive Date: 20040219
  Receipt Date: 20040219
  Transmission Date: 20041129
  Serious: Yes (Hospitalization)
  Sender: FDA-Public Use
  Company Number: None

PATIENT
  Age: 62 Year
  Sex: Male

DRUGS (8)
  1. METOPROLOL [Suspect]
     Dosage: 25 MG BID
  2. TYLENOL (CAPLET) [Concomitant]
  3. GABAPENTIN [Concomitant]
  4. INSULIN [Concomitant]
  5. RABEPRAZOLE SODIUM [Concomitant]
  6. LISINOPRIL [Concomitant]
  7. LASIX [Concomitant]
  8. PROPRAZODINE [Concomitant]

REACTIONS (1)
  - BRADYCARDIA [None]
